FAERS Safety Report 6484331-X (Version None)
Quarter: 2009Q4

REPORT INFORMATION
  Report Type: 
  Country: None (occurrence: None)
  Receive Date: 20091209
  Receipt Date: 20090527
  Transmission Date: 20100525
  Serious: No
  Sender: FDA-Public Use
  Company Number: US-AMGEN-KDL348991

PATIENT
  Sex: Female

DRUGS (3)
  1. ENBREL [Suspect]
     Indication: RHEUMATOID ARTHRITIS
     Route: 058
     Dates: start: 20080930
  2. PLAQUENIL [Concomitant]
     Route: 048
  3. METHOTREXATE [Concomitant]
     Route: 048

REACTIONS (7)
  - ERYTHEMA [None]
  - FLUSHING [None]
  - HYPOAESTHESIA [None]
  - INSOMNIA [None]
  - LOCALISED OEDEMA [None]
  - NODULE [None]
  - PAIN [None]
